FAERS Safety Report 4861064-4 (Version None)
Quarter: 2005Q4

REPORT INFORMATION
  Report Type: 
  Country: None (occurrence: None)
  Receive Date: 20051220
  Receipt Date: 20051108
  Transmission Date: 20060501
  Serious: Yes (Other)
  Sender: FDA-Public Use
  Company Number: US-GLAXOSMITHKLINE-A0581458A

PATIENT
  Age: 53 Year
  Sex: Female

DRUGS (8)
  1. AVANDAMET [Suspect]
     Dosage: 1TAB TWICE PER DAY
     Route: 048
     Dates: start: 20040201
  2. QUINAPRIL [Concomitant]
  3. MERIDIA [Concomitant]
  4. MULTI-VITAMIN [Concomitant]
  5. FISH OIL [Concomitant]
  6. ASPIRIN [Concomitant]
  7. CALCIUM GLUCONATE [Concomitant]
  8. PREDNISOLONE [Concomitant]

REACTIONS (5)
  - CORNEAL OEDEMA [None]
  - EYE INFECTION [None]
  - HYPERSENSITIVITY [None]
  - SOMNOLENCE [None]
  - VISION BLURRED [None]
